FAERS Safety Report 12670788 (Version 1)
Quarter: 2016Q3

REPORT INFORMATION
  Report Type: Spontaneous
  Country: US (occurrence: US)
  Receive Date: 20160822
  Receipt Date: 20160822
  Transmission Date: 20161109
  Serious: No
  Sender: FDA-Public Use
  Company Number: US-JAZZ-2016-US-006018

PATIENT
  Age: 73 Year
  Sex: Female

DRUGS (19)
  1. NASONEX [Concomitant]
     Active Substance: MOMETASONE FUROATE
  2. MULTIVITAMINS [Concomitant]
     Active Substance: VITAMINS
  3. ALEVE [Concomitant]
     Active Substance: NAPROXEN SODIUM
  4. XYREM [Suspect]
     Active Substance: SODIUM OXYBATE
     Indication: NARCOLEPSY
     Dosage: 2.25 G, BID
     Route: 048
     Dates: start: 201601, end: 201602
  5. XYREM [Suspect]
     Active Substance: SODIUM OXYBATE
     Dosage: 3.75 G, BID
     Route: 048
     Dates: start: 201602, end: 201602
  6. BONIVA [Concomitant]
     Active Substance: IBANDRONATE SODIUM
  7. CALCIUM +D [Concomitant]
     Active Substance: CALCIUM\VITAMIN D
  8. FISH OIL [Concomitant]
     Active Substance: FISH OIL
  9. SYNTHROID [Concomitant]
     Active Substance: LEVOTHYROXINE SODIUM
  10. LISINOPRIL. [Concomitant]
     Active Substance: LISINOPRIL
  11. NUVIGIL [Concomitant]
     Active Substance: ARMODAFINIL
  12. AZITHROMYCIN ANHYDROUS. [Concomitant]
     Active Substance: AZITHROMYCIN ANHYDROUS
  13. BENADRYL ALLERGY [Concomitant]
     Active Substance: DIPHENHYDRAMINE HYDROCHLORIDE
  14. XYREM [Suspect]
     Active Substance: SODIUM OXYBATE
     Dosage: 4.5 G, BID
     Route: 048
     Dates: start: 201602
  15. DETROL [Concomitant]
     Active Substance: TOLTERODINE TARTRATE
  16. VITAMIN D [Concomitant]
     Active Substance: CHOLECALCIFEROL
  17. VITAMIN C [Concomitant]
     Active Substance: ASCORBIC ACID
  18. VITAMIN B12 [Concomitant]
     Active Substance: CYANOCOBALAMIN
  19. PROAIR HFA [Concomitant]
     Active Substance: ALBUTEROL SULFATE

REACTIONS (2)
  - Dizziness [Unknown]
  - Hypersensitivity [Unknown]

NARRATIVE: CASE EVENT DATE: 201602
